FAERS Safety Report 25534299 (Version 1)
Quarter: 2025Q3

REPORT INFORMATION
  Report Type: Spontaneous
  Country: US (occurrence: None)
  Receive Date: 20250708
  Receipt Date: 20250708
  Transmission Date: 20251020
  Serious: No
  Sender: FDA-CTU
  Company Number: None

PATIENT
  Age: 44 Year
  Sex: Female

DRUGS (1)
  1. LENALIDOMIDE [Suspect]
     Active Substance: LENALIDOMIDE
     Indication: Plasma cell myeloma
     Dosage: FREQUENCY : DAILY;?
     Route: 048
     Dates: start: 20250602

REACTIONS (4)
  - Pneumonia [None]
  - Anaemia [None]
  - Bronchial wall thickening [None]
  - Bronchial hyperreactivity [None]

NARRATIVE: CASE EVENT DATE: 20250611
